FAERS Safety Report 4347350-5 (Version None)
Quarter: 2004Q1

REPORT INFORMATION
  Report Type: 
  Country: None (occurrence: None)
  Receive Date: 20040329
  Receipt Date: 20031230
  Transmission Date: 20041129
  Serious: No
  Sender: FDA-Public Use
  Company Number: USA031255561

PATIENT
  Age: 10 Year
  Sex: Male
  Weight: 30 kg

DRUGS (3)
  1. STRATTERA [Suspect]
     Dosage: 40 MG/IN THE MORNING
     Dates: start: 20031201
  2. ALBUTEROL [Concomitant]
  3. INTAL [Concomitant]

REACTIONS (2)
  - DRUG INTERACTION [None]
  - RESPIRATORY TRACT INFECTION VIRAL [None]
